FAERS Safety Report 6660698-4 (Version None)
Quarter: 2010Q1

REPORT INFORMATION
  Report Type: 
  Country: None (occurrence: None)
  Receive Date: 20100331
  Receipt Date: 20100322
  Transmission Date: 20100710
  Serious: Yes (Hospitalization)
  Sender: FDA-Public Use
  Company Number: FR-ASTRAZENECA-2010SE12697

PATIENT
  Age: 10786 Day
  Sex: Female

DRUGS (13)
  1. NEXIUM [Suspect]
     Dosage: 1 TABLET DAILY
     Route: 048
     Dates: start: 20100219, end: 20100223
  2. AUGMENTIN [Suspect]
     Route: 042
     Dates: start: 20100219, end: 20100223
  3. KARDEGIC [Concomitant]
  4. ENALAPRIL MALEATE [Concomitant]
  5. TAHOR [Concomitant]
  6. ZOFENIL DUO [Concomitant]
  7. PARIET [Concomitant]
  8. FORLAX [Concomitant]
  9. DAFALGAN [Concomitant]
  10. LEXOMIL [Concomitant]
  11. TRAMADOL HCL [Concomitant]
  12. CERIS [Concomitant]
     Dosage: ONE TABLET DAILY
  13. VASTAREL [Concomitant]

REACTIONS (2)
  - BLOOD CREATININE INCREASED [None]
  - RENAL FAILURE [None]
